FAERS Safety Report 6083974-5 (Version None)
Quarter: 2009Q1

REPORT INFORMATION
  Report Type: 
  Country: None (occurrence: None)
  Receive Date: 20090217
  Receipt Date: 20090217
  Transmission Date: 20090719
  Serious: Yes (Hospitalization)
  Sender: FDA-Public Use
  Company Number: None

PATIENT
  Age: 73 Year
  Sex: Male
  Weight: 74.55 kg

DRUGS (1)
  1. CIPROFLOXACIN [Suspect]
     Dosage: 400 MG ONCE IV
     Route: 042
     Dates: start: 20080721, end: 20080721

REACTIONS (1)
  - ANAPHYLACTIC REACTION [None]
